FAERS Safety Report 4970647-2 (Version None)
Quarter: 2006Q2

REPORT INFORMATION
  Report Type: 
  Country: None (occurrence: None)
  Receive Date: 20060412
  Receipt Date: 20060404
  Transmission Date: 20061013
  Serious: Yes (Hospitalization, Other)
  Sender: FDA-Public Use
  Company Number: MX-MERCK-0604USA00866

PATIENT
  Sex: Female

DRUGS (1)
  1. VIOXX [Suspect]
     Route: 065
     Dates: start: 20011226, end: 20020225

REACTIONS (3)
  - ADVERSE EVENT [None]
  - BLOOD PRESSURE [None]
  - CEREBROVASCULAR ACCIDENT [None]
